FAERS Safety Report 10069972 (Version 1)
Quarter: 2014Q2

REPORT INFORMATION
  Report Type: Report from Study
  Country: CA (occurrence: CA)
  Receive Date: 20140410
  Receipt Date: 20140410
  Transmission Date: 20141212
  Serious: Yes (Hospitalization)
  Sender: FDA-Public Use
  Company Number: CA-JNJFOC-20140403566

PATIENT
  Age: 51 Year
  Sex: Male
  Weight: 89 kg

DRUGS (8)
  1. REMICADE [Suspect]
     Indication: RHEUMATOID ARTHRITIS
     Route: 042
     Dates: start: 2005
  2. HYDROMORPHONE [Concomitant]
     Dosage: 2-4 TABLETS, EVERY 4 HOURS PRN
     Route: 065
  3. LYRICA [Concomitant]
     Dosage: AM AND PM
     Route: 065
  4. PLAQUENIL [Concomitant]
     Route: 065
  5. VENTOLIN [Concomitant]
     Dosage: 2 PUFFS EVERY 4-6 HOURS
     Route: 065
  6. MS CONTIN [Concomitant]
     Route: 065
  7. ADVAIR [Concomitant]
     Dosage: 250
     Route: 065
  8. SPIRIVA [Concomitant]
     Route: 065

REACTIONS (3)
  - Rotator cuff repair [Unknown]
  - Tendon operation [Unknown]
  - Brain neoplasm benign [Unknown]
